FAERS Safety Report 4427951-6 (Version None)
Quarter: 2004Q3

REPORT INFORMATION
  Report Type: 
  Country: None (occurrence: None)
  Receive Date: 20040813
  Receipt Date: 20040106
  Transmission Date: 20050211
  Serious: Yes (Death)
  Sender: FDA-Public Use
  Company Number: 163-20785-03110321

PATIENT
  Age: 60 Year
  Sex: Male

DRUGS (2)
  1. THALOMID [Suspect]
     Indication: AMYLOIDOSIS
     Dosage: 200 MG, DAILY, ORAL
     Route: 048
     Dates: start: 20031014, end: 20031104
  2. THALOMID [Suspect]
     Indication: MULTIPLE MYELOMA
     Dosage: 200 MG, DAILY, ORAL
     Route: 048
     Dates: start: 20031014, end: 20031104

REACTIONS (1)
  - CARDIAC FAILURE [None]
